FAERS Safety Report 22085660 (Version 1)
Quarter: 2023Q1

REPORT INFORMATION
  Report Type: Spontaneous
  Country: US (occurrence: US)
  Receive Date: 20230310
  Receipt Date: 20230310
  Transmission Date: 20230418
  Serious: No
  Sender: FDA-Public Use
  Company Number: US-SA-SAC20230309000089

PATIENT
  Sex: Female

DRUGS (1)
  1. DUPIXENT [Suspect]
     Active Substance: DUPILUMAB
     Dosage: 300 MG (OTHER)
     Route: 058

REACTIONS (5)
  - Abdominal discomfort [Unknown]
  - Condition aggravated [Unknown]
  - Nasopharyngitis [Unknown]
  - Therapeutic response decreased [Unknown]
  - Intentional dose omission [Unknown]
